FAERS Safety Report 14420599 (Version 1)
Quarter: 2018Q1

REPORT INFORMATION
  Report Type: Spontaneous
  Country: US (occurrence: US)
  Receive Date: 20180122
  Receipt Date: 20180122
  Transmission Date: 20180509
  Serious: No
  Sender: FDA-Public Use
  Company Number: US-ROCHE-1962207

PATIENT
  Sex: Female
  Weight: 65.83 kg

DRUGS (9)
  1. LYRICA [Concomitant]
     Active Substance: PREGABALIN
     Route: 048
     Dates: start: 20170404
  2. IMURAN [Concomitant]
     Active Substance: AZATHIOPRINE
  3. DEXAMETHASONE. [Concomitant]
     Active Substance: DEXAMETHASONE
     Dosage: RINSE AND SPIT A SMALL AMOUNT
     Route: 048
  4. PREDNISONE. [Concomitant]
     Active Substance: PREDNISONE
  5. RITUXAN [Suspect]
     Active Substance: RITUXIMAB
     Indication: PEMPHIGUS
     Dosage: AT WEEK 0 AND WEEK 2
     Route: 042
  6. MYCOPHENOLATE MOFETIL. [Concomitant]
     Active Substance: MYCOPHENOLATE MOFETIL
     Route: 048
     Dates: start: 20170406
  7. PERIDEX (UNITED STATES) [Concomitant]
     Dosage: RINSE MOUTH TWICE DAILY, AM AND PM
     Route: 048
     Dates: start: 20170406
  8. CYTOXAN [Concomitant]
     Active Substance: CYCLOPHOSPHAMIDE
  9. GABAPENTIN. [Concomitant]
     Active Substance: GABAPENTIN
     Route: 048
     Dates: start: 20170413

REACTIONS (3)
  - Intentional product use issue [Unknown]
  - Off label use [Unknown]
  - No adverse event [Unknown]
